FAERS Safety Report 19032870 (Version 1)
Quarter: 2021Q1

REPORT INFORMATION
  Report Type: Spontaneous
  Country: US (occurrence: US)
  Receive Date: 20210319
  Receipt Date: 20210319
  Transmission Date: 20210420
  Serious: No
  Sender: FDA-Public Use
  Company Number: US-THERAPEUTICSMD-2021TMD00206

PATIENT
  Age: 58 Year
  Sex: Female
  Weight: 60.32 kg

DRUGS (13)
  1. IMVEXXY [Suspect]
     Active Substance: ESTRADIOL
     Indication: VULVOVAGINAL DRYNESS
     Dosage: 10 ?G, 2X/WEEK BEFORE BED (MONDAY AND THURSDAY)
     Route: 067
     Dates: start: 2020
  2. BIOTIN [Concomitant]
     Active Substance: BIOTIN
  3. TURMERIC [Concomitant]
     Active Substance: HERBALS\TURMERIC
  4. FIBER [Concomitant]
     Active Substance: PSYLLIUM HUSK
  5. PROBIOTICS [Concomitant]
     Active Substance: PROBIOTICS NOS
  6. L?GLUTAMINE [Concomitant]
  7. OMEGA 3 [Concomitant]
     Active Substance: OMEGA-3 FATTY ACIDS
  8. ZYRTEC [Concomitant]
     Active Substance: CETIRIZINE HYDROCHLORIDE
  9. VITAMIN B12 [Concomitant]
     Active Substance: CYANOCOBALAMIN
  10. MAGNESIUM [Concomitant]
     Active Substance: MAGNESIUM
  11. SACCHAROMYCES BOULARDII [Concomitant]
     Active Substance: SACCHAROMYCES CEREVISIAE
  12. ^G3^ [Concomitant]
  13. MULTIVITAMIN [Concomitant]
     Active Substance: VITAMINS

REACTIONS (3)
  - Vaginal discharge [Not Recovered/Not Resolved]
  - Coeliac disease [Not Recovered/Not Resolved]
  - Off label use [Not Recovered/Not Resolved]

NARRATIVE: CASE EVENT DATE: 2020
